FAERS Safety Report 22873819 (Version 2)
Quarter: 2024Q2

REPORT INFORMATION
  Report Type: Report from Study
  Country: US (occurrence: US)
  Receive Date: 20230828
  Receipt Date: 20240621
  Transmission Date: 20240716
  Serious: Yes (Other)
  Sender: FDA-Public Use
  Company Number: US-ABBVIE-5379312

PATIENT
  Sex: Female
  Weight: 48 kg

DRUGS (5)
  1. VENCLEXTA [Suspect]
     Active Substance: VENETOCLAX
     Indication: Chronic lymphocytic leukaemia
     Dosage: FREQUENCY TEXT: STARTED WITH 100MG, EVENTUALLY TO 200, TAKE 3 TABLET(S) BY MOUTH DAILY
     Route: 048
  2. VENCLEXTA [Suspect]
     Active Substance: VENETOCLAX
     Indication: Chronic lymphocytic leukaemia
     Dosage: FORM STRENGTH: 100 MILLIGRAM
     Route: 048
     Dates: start: 201904
  3. VENCLEXTA [Suspect]
     Active Substance: VENETOCLAX
     Indication: Chronic lymphocytic leukaemia
     Dosage: FORM STRENGTH: 100 MILLIGRAM?FREQUENCY TEXT: TAKE 2 TABLET(S) BY MOUTH EVERY DAY
     Route: 048
     Dates: start: 20190526
  4. RITUXAN [Suspect]
     Active Substance: RITUXIMAB
     Indication: Product used for unknown indication
     Route: 065
  5. ARBUTIN [Concomitant]
     Active Substance: ARBUTIN
     Indication: Product used for unknown indication

REACTIONS (21)
  - Atrial fibrillation [Unknown]
  - Pruritus [Unknown]
  - Cardiac dysfunction [Unknown]
  - Arthralgia [Unknown]
  - Feeling abnormal [Unknown]
  - Weight increased [Recovered/Resolved]
  - Myalgia [Unknown]
  - Drug hypersensitivity [Unknown]
  - Nasopharyngitis [Unknown]
  - Constipation [Unknown]
  - Neuropathy peripheral [Unknown]
  - Pollakiuria [Unknown]
  - Cachexia [Unknown]
  - Thyroid disorder [Unknown]
  - Rash [Not Recovered/Not Resolved]
  - Drug tolerance decreased [Unknown]
  - Urticaria [Unknown]
  - Red blood cell count decreased [Unknown]
  - COVID-19 [Unknown]
  - Immunodeficiency [Unknown]
  - Fluid retention [Unknown]
